FAERS Safety Report 13981187 (Version 1)
Quarter: 2017Q3

REPORT INFORMATION
  Report Type: Spontaneous
  Country: US (occurrence: US)
  Receive Date: 20170915
  Receipt Date: 20170915
  Transmission Date: 20171128
  Serious: No
  Sender: FDA-Public Use
  Company Number: None

PATIENT
  Sex: Female

DRUGS (2)
  1. HUMULIN NOS [Suspect]
     Active Substance: INSULIN HUMAN
  2. NOVOLOG [Suspect]
     Active Substance: INSULIN ASPART

REACTIONS (2)
  - Exposure during pregnancy [None]
  - Skin reaction [None]
